FAERS Safety Report 23780135 (Version 4)
Quarter: 2024Q2

REPORT INFORMATION
  Report Type: Report from Study
  Country: CA (occurrence: CA)
  Receive Date: 20240424
  Receipt Date: 20240521
  Transmission Date: 20240716
  Serious: Yes (Other)
  Sender: FDA-Public Use
  Company Number: CA-BIOGEN-2024BI01247806

PATIENT
  Sex: Female

DRUGS (2)
  1. TYSABRI [Suspect]
     Active Substance: NATALIZUMAB
     Indication: Multiple sclerosis
     Route: 050
     Dates: start: 20240125
  2. TYSABRI [Suspect]
     Active Substance: NATALIZUMAB
     Route: 050
     Dates: start: 20240125, end: 20240416

REACTIONS (9)
  - Infusion related reaction [Recovered/Resolved]
  - Multiple sclerosis relapse [Unknown]
  - Feeling cold [Unknown]
  - Hypoaesthesia [Recovered/Resolved]
  - Band sensation [Unknown]
  - Musculoskeletal stiffness [Unknown]
  - Sensory disturbance [Unknown]
  - Fatigue [Recovered/Resolved]
  - Neutralising antibodies positive [Unknown]

NARRATIVE: CASE EVENT DATE: 20240101
